FAERS Safety Report 11730099 (Version 1)
Quarter: 2015Q4

REPORT INFORMATION
  Report Type: Spontaneous
  Country: US (occurrence: US)
  Receive Date: 20151110
  Receipt Date: 20151110
  Transmission Date: 20160304
  Serious: No
  Sender: FDA-Public Use
  Company Number: US-ELI_LILLY_AND_COMPANY-US201109007606

PATIENT
  Age: 57 Year
  Sex: Female

DRUGS (7)
  1. FORTEO [Suspect]
     Active Substance: TERIPARATIDE
     Indication: OSTEOPOROSIS
     Dosage: 20 UG, QD
     Route: 065
  2. FORTEO [Suspect]
     Active Substance: TERIPARATIDE
     Dosage: 20 UG, QD
     Route: 065
     Dates: end: 201109
  3. FORTEO [Suspect]
     Active Substance: TERIPARATIDE
     Dosage: 20 UG, QD
     Route: 065
  4. FORTEO [Suspect]
     Active Substance: TERIPARATIDE
     Dosage: 20 UG, QD
     Route: 065
  5. FORTEO [Suspect]
     Active Substance: TERIPARATIDE
     Dosage: 20 UG, QD
     Route: 065
  6. FORTEO [Suspect]
     Active Substance: TERIPARATIDE
     Dosage: 20 UG, QD
     Route: 065
  7. FORTEO [Suspect]
     Active Substance: TERIPARATIDE
     Dosage: 20 UG, QD
     Route: 065

REACTIONS (25)
  - Pelvic pain [Recovering/Resolving]
  - Oropharyngeal pain [Unknown]
  - Chills [Unknown]
  - Joint swelling [Not Recovered/Not Resolved]
  - Rheumatoid factor positive [Unknown]
  - Asthenia [Recovering/Resolving]
  - Pain in extremity [Recovered/Resolved]
  - Feeling abnormal [Not Recovered/Not Resolved]
  - Chest pain [Recovered/Resolved]
  - Adnexa uteri pain [Recovering/Resolving]
  - Influenza like illness [Unknown]
  - Cough [Recovering/Resolving]
  - Red blood cell sedimentation rate increased [Unknown]
  - Arthralgia [Recovered/Resolved]
  - Back pain [Recovering/Resolving]
  - Arthritis [Not Recovered/Not Resolved]
  - Bone density decreased [Unknown]
  - Constipation [Recovering/Resolving]
  - Pyrexia [Recovering/Resolving]
  - Pyrexia [Recovered/Resolved]
  - Pain in extremity [Unknown]
  - Pain in extremity [Recovered/Resolved]
  - Erythema [Not Recovered/Not Resolved]
  - Arthropathy [Not Recovered/Not Resolved]
  - Nasopharyngitis [Not Recovered/Not Resolved]

NARRATIVE: CASE EVENT DATE: 20110905
